FAERS Safety Report 7048407-0 (Version None)
Quarter: 2010Q4

REPORT INFORMATION
  Report Type: 
  Country: None (occurrence: None)
  Receive Date: 20101014
  Receipt Date: 20101014
  Transmission Date: 20110411
  Serious: Yes (Life-Threatening, Disabling, Other)
  Sender: FDA-Public Use
  Company Number: None

PATIENT
  Age: 65 Year
  Sex: Female
  Weight: 88.4514 kg

DRUGS (1)
  1. OMEPRAZOLE [Suspect]
     Indication: DYSPEPSIA
     Dosage: ONE EVERY DAY PO
     Route: 048
     Dates: start: 20100930, end: 20100930

REACTIONS (4)
  - CAPSULE ISSUE [None]
  - NEOPLASM MALIGNANT [None]
  - OROPHARYNGEAL BLISTERING [None]
  - PHARYNGEAL ERYTHEMA [None]
